FAERS Safety Report 14690039 (Version 4)
Quarter: 2018Q3

REPORT INFORMATION
  Report Type: Spontaneous
  Country: FR (occurrence: FR)
  Receive Date: 20180328
  Receipt Date: 20180804
  Transmission Date: 20181010
  Serious: Yes (Death)
  Sender: FDA-Public Use
  Company Number: FR-TEVA-2018-FR-871643

PATIENT
  Age: 85 Year
  Sex: Female
  Weight: 100 kg

DRUGS (7)
  1. RIFADINE 300 MG, CAPSULE [Suspect]
     Active Substance: RIFAMPIN
     Indication: DEVICE RELATED INFECTION
     Route: 048
     Dates: start: 20170728, end: 20170821
  2. LANSOPRAZOLE. [Suspect]
     Active Substance: LANSOPRAZOLE
     Indication: GASTROOESOPHAGEAL REFLUX DISEASE
     Dosage: 30 MILLIGRAM DAILY;
     Route: 048
     Dates: end: 20170821
  3. CEFEPIME MYLAN 2 G, POWDER FOR SOLUTION FOR INJECTION [Suspect]
     Active Substance: CEFEPIME HYDROCHLORIDE
     Indication: DEVICE RELATED INFECTION
     Route: 041
     Dates: start: 20170724, end: 20170731
  4. PIPERACILLINE PANPHARMA [Suspect]
     Active Substance: PIPERACILLIN SODIUM
     Indication: DEVICE RELATED INFECTION
     Route: 041
     Dates: start: 20170804, end: 20170821
  5. DALACINE [Suspect]
     Active Substance: CLINDAMYCIN
     Indication: DEVICE RELATED INFECTION
     Dosage: 1800 MILLIGRAM DAILY;
     Route: 048
     Dates: start: 20170728, end: 20170821
  6. VALSARTAN. [Concomitant]
     Active Substance: VALSARTAN
     Route: 065
  7. CRESTOR [Concomitant]
     Active Substance: ROSUVASTATIN CALCIUM
     Route: 065

REACTIONS (4)
  - Eosinophilia [Fatal]
  - Rash [Fatal]
  - Pruritus [Fatal]
  - Drug reaction with eosinophilia and systemic symptoms [None]

NARRATIVE: CASE EVENT DATE: 20170817
